FAERS Safety Report 5755807-5 (Version None)
Quarter: 2008Q2

REPORT INFORMATION
  Report Type: 
  Country: None (occurrence: None)
  Receive Date: 20080528
  Receipt Date: 20080514
  Transmission Date: 20081010
  Serious: No
  Sender: FDA-Public Use
  Company Number: 001029

PATIENT
  Age: 56 Year
  Sex: Male

DRUGS (5)
  1. PLETAL [Suspect]
     Indication: CEREBRAL INFARCTION
     Dosage: 50 MG, BID; ORAL; 100 MG,BID; ORAL
     Route: 048
     Dates: start: 20080116, end: 20080214
  2. PLETAL [Suspect]
     Indication: CEREBRAL INFARCTION
     Dosage: 50 MG, BID; ORAL; 100 MG,BID; ORAL
     Route: 048
     Dates: start: 20080215, end: 20080318
  3. DIOVAN [Concomitant]
  4. ASPIRIN [Concomitant]
  5. ZANTAC (RANITIDINE HYDROCHLORIDE) TABLET [Concomitant]

REACTIONS (1)
  - TRANSIENT ISCHAEMIC ATTACK [None]
